FAERS Safety Report 4832607-1 (Version None)
Quarter: 2005Q4

REPORT INFORMATION
  Report Type: 
  Country: None (occurrence: None)
  Receive Date: 20051121
  Receipt Date: 20051109
  Transmission Date: 20060501
  Serious: Yes (Hospitalization)
  Sender: FDA-Public Use
  Company Number: US-JNJFOC-20051102708

PATIENT
  Sex: Male
  Weight: 114.31 kg

DRUGS (13)
  1. REMICADE [Suspect]
     Route: 042
  2. REMICADE [Suspect]
     Indication: RHEUMATOID ARTHRITIS
     Route: 042
  3. METHOTREXATE [Concomitant]
     Dosage: 3-6 MONTHS
  4. PREDNISONE [Concomitant]
     Dosage: INCREASE BECAUSE OF LYMPH NODES
  5. PREDNISONE [Concomitant]
     Dosage: 3-6 MONTHS
  6. METFORMIN [Concomitant]
  7. ACTZ [Concomitant]
  8. VYTORIN [Concomitant]
     Dosage: 10/40 MG AT NIGHT
  9. FOLIC ACID [Concomitant]
  10. LODINE [Concomitant]
  11. HYTRIN [Concomitant]
  12. TRAZODONE [Concomitant]
  13. ACTONEL [Concomitant]

REACTIONS (2)
  - LYMPHADENITIS [None]
  - PROSTATE EXAMINATION ABNORMAL [None]
